FAERS Safety Report 6201263-2 (Version None)
Quarter: 2009Q2

REPORT INFORMATION
  Report Type: 
  Country: None (occurrence: None)
  Receive Date: 20090526
  Receipt Date: 20090514
  Transmission Date: 20091009
  Serious: Yes (Hospitalization, Other)
  Sender: FDA-Public Use
  Company Number: PHHY2009JP07075

PATIENT
  Age: 45 Year
  Sex: Male

DRUGS (3)
  1. SANDOSTATIN [Suspect]
     Indication: PITUITARY TUMOUR
     Dosage: 100 UG
     Route: 058
     Dates: start: 20060101
  2. SANDOSTATIN [Suspect]
     Dosage: 20 UG/DAY
     Route: 058
  3. SANDOSTATIN [Suspect]
     Dosage: 100 UG/DAY
     Route: 058
     Dates: start: 20070101

REACTIONS (2)
  - ABDOMINAL DISTENSION [None]
  - INTESTINAL OBSTRUCTION [None]
